FAERS Safety Report 7295200-X (Version None)
Quarter: 2011Q1

REPORT INFORMATION
  Report Type: 
  Country: None (occurrence: None)
  Receive Date: 20110216
  Receipt Date: 20101203
  Transmission Date: 20110831
  Serious: Yes (Other)
  Sender: FDA-Public Use
  Company Number: A0897670A

PATIENT
  Age: 62 Year
  Sex: Male

DRUGS (4)
  1. VOTRIENT [Suspect]
     Dosage: 800MG PER DAY
     Route: 048
     Dates: start: 20100927
  2. SYNTHROID [Concomitant]
  3. HYDRODIURIL [Concomitant]
  4. NORVASC [Concomitant]

REACTIONS (7)
  - HEPATIC ENZYME INCREASED [None]
  - BLOOD PRESSURE INCREASED [None]
  - HYPOTHYROIDISM [None]
  - RASH [None]
  - ABDOMINAL DISCOMFORT [None]
  - ABDOMINAL PAIN UPPER [None]
  - PALMAR-PLANTAR ERYTHRODYSAESTHESIA SYNDROME [None]
